FAERS Safety Report 15370921 (Version 2)
Quarter: 2021Q4

REPORT INFORMATION
  Report Type: Spontaneous
  Country: FR (occurrence: FR)
  Receive Date: 20180911
  Receipt Date: 20211130
  Transmission Date: 20220303
  Serious: Yes (Congenital Anomaly)
  Sender: FDA-Public Use
  Company Number: None

PATIENT
  Sex: Male
  Weight: 3 kg

DRUGS (2)
  1. GABAPENTIN [Suspect]
     Active Substance: GABAPENTIN
     Indication: Product used for unknown indication
     Dosage: 1200 MG, UNK
     Route: 064
     Dates: start: 20160612, end: 20161225
  2. SKENAN [Suspect]
     Active Substance: MORPHINE SULFATE
     Indication: Abdominal pain
     Dosage: 50 MG, Q2D
     Route: 064
     Dates: start: 20160417, end: 20161225

REACTIONS (2)
  - Dysmorphism [Not Recovered/Not Resolved]
  - Foetal exposure during pregnancy [Recovered/Resolved]

NARRATIVE: CASE EVENT DATE: 20161225
